FAERS Safety Report 5905918-6 (Version None)
Quarter: 2008Q4

REPORT INFORMATION
  Report Type: 
  Country: None (occurrence: None)
  Receive Date: 20081002
  Receipt Date: 20080924
  Transmission Date: 20090506
  Serious: Yes (Life-Threatening, Hospitalization)
  Sender: FDA-Public Use
  Company Number: IN-WATSON-2008-05718

PATIENT
  Sex: Female

DRUGS (4)
  1. TRELSTAR DEPOT MIXJECT (WATSON LABORATORIES) [Suspect]
     Indication: HORMONE SUPPRESSION THERAPY
     Dosage: 3.75 MG, UNK
     Route: 030
     Dates: start: 20070725, end: 20080820
  2. EXEMESTANE [Suspect]
     Indication: BREAST CANCER
     Dosage: 25 MG, UNK
     Route: 048
     Dates: start: 20070905
  3. ESCITALOPRAM [Concomitant]
     Indication: DRUG USE FOR UNKNOWN INDICATION
     Dosage: UNK
     Route: 065
  4. CLONAZEPAM [Concomitant]
     Indication: DRUG USE FOR UNKNOWN INDICATION
     Dosage: UNK
     Route: 065

REACTIONS (1)
  - DEPRESSION SUICIDAL [None]
